FAERS Safety Report 15610542 (Version 3)
Quarter: 2020Q4

REPORT INFORMATION
  Report Type: Spontaneous
  Country: US (occurrence: US)
  Receive Date: 20181113
  Receipt Date: 20201109
  Transmission Date: 20210113
  Serious: No
  Sender: FDA-Public Use
  Company Number: US-ROCHE-2143697

PATIENT
  Sex: Male
  Weight: 40.86 kg

DRUGS (5)
  1. PULMOZYME [Suspect]
     Active Substance: DORNASE ALFA
     Indication: METABOLIC DISORDER
     Dosage: 1MG/ML 2.5 ML
     Dates: start: 20171205
  2. AZITHROMYCIN ANHYDROUS. [Concomitant]
     Active Substance: AZITHROMYCIN ANHYDROUS
     Route: 048
     Dates: start: 20171201
  3. FLONASE [Concomitant]
     Active Substance: FLUTICASONE PROPIONATE
     Route: 045
     Dates: start: 20171201
  4. CYPROHEPTADINE. [Concomitant]
     Active Substance: CYPROHEPTADINE
     Dosage: ONGOING; UNKNOWN
     Route: 048
     Dates: start: 20181227
  5. ALBUTEROL. [Concomitant]
     Active Substance: ALBUTEROL
     Dosage: ONGOING; UNKNOWN
     Route: 045
     Dates: start: 20171201

REACTIONS (3)
  - Off label use [Unknown]
  - Intentional product use issue [Unknown]
  - No adverse event [Unknown]
